FAERS Safety Report 10913144 (Version 4)
Quarter: 2015Q2

REPORT INFORMATION
  Report Type: Report from Study
  Country: BE (occurrence: BE)
  Receive Date: 20150313
  Receipt Date: 20150609
  Transmission Date: 20150821
  Serious: Yes (Hospitalization)
  Sender: FDA-Public Use
  Company Number: BE-ABBVIE-15P-013-1346183-00

PATIENT
  Sex: Male

DRUGS (13)
  1. DUODOPA [Suspect]
     Active Substance: CARBIDOPA\LEVODOPA
     Dosage: AM: 5.5ML; CD: 4.1ML/H FOR 16 HRS; ED: 2.2ML
     Route: 050
     Dates: start: 20140617, end: 20141027
  2. LORAMET [Concomitant]
     Active Substance: LORMETAZEPAM
     Indication: PRODUCT USED FOR UNKNOWN INDICATION
  3. DUODOPA [Suspect]
     Active Substance: CARBIDOPA\LEVODOPA
     Dosage: AM = 5.5 ML, CD = 4.3 ML/H DURING 16H, ED = 2.5 ML
     Route: 050
     Dates: start: 20140402, end: 20140617
  4. SILODYX [Concomitant]
     Active Substance: SILODOSIN
     Indication: PRODUCT USED FOR UNKNOWN INDICATION
  5. DUODOPA [Suspect]
     Active Substance: CARBIDOPA\LEVODOPA
     Dosage: AM: 5.5ML; CD: 3.9ML/H FOR 16 HRS; ED: 2.2ML
     Route: 050
     Dates: start: 20141027, end: 20150212
  6. DUODOPA [Suspect]
     Active Substance: CARBIDOPA\LEVODOPA
     Dosage: AM: 5.5ML; CD: 3.3ML/H FOR 16 HRS; ED: 2.2ML
     Route: 050
     Dates: start: 20150213, end: 20150304
  7. SEROQUEL [Concomitant]
     Active Substance: QUETIAPINE FUMARATE
     Indication: PRODUCT USED FOR UNKNOWN INDICATION
  8. DUODOPA [Suspect]
     Active Substance: CARBIDOPA\LEVODOPA
     Dosage: DOSE CONTINUOUSLY MONITORED AND ADAPTED
     Route: 050
     Dates: start: 20130725, end: 20140402
  9. DUODOPA [Suspect]
     Active Substance: CARBIDOPA\LEVODOPA
     Dosage: AM: 5.5ML; CD: 3.5ML/H FOR 16 HRS; ED: 2.2ML
     Route: 050
     Dates: start: 20150212, end: 20150213
  10. DUODOPA [Suspect]
     Active Substance: CARBIDOPA\LEVODOPA
     Indication: PARKINSON^S DISEASE
     Dosage: AM = 7 ML, CD = 4.3 ML/H DURING 16H, ED = 2 ML
     Route: 050
     Dates: start: 20130527, end: 20130725
  11. DUODOPA [Suspect]
     Active Substance: CARBIDOPA\LEVODOPA
     Dosage: AM DOSE=5.5ML, CD=3.2ML/H FOR 16HRS AND ED=2.2ML
     Route: 050
     Dates: start: 20150304, end: 20150306
  12. DUODOPA [Suspect]
     Active Substance: CARBIDOPA\LEVODOPA
     Dosage: AM = 5.5 ML, CD = 3.2 ML/H DURING 16H, ED = 0 ML
     Route: 050
     Dates: start: 20150306, end: 20150428
  13. PROLOPA [Concomitant]
     Active Substance: BENSERAZIDE\LEVODOPA
     Indication: PARKINSON^S DISEASE
     Dosage: FORM STRENGTH: 100MG/25MG. EMERGENCY MEDICATION: 8 IN 1 DAY

REACTIONS (12)
  - Restlessness [Unknown]
  - Aggression [Recovering/Resolving]
  - Confusional state [Not Recovered/Not Resolved]
  - Abnormal behaviour [Recovering/Resolving]
  - Incorrect dose administered [Unknown]
  - Abnormal behaviour [Unknown]
  - Dyskinesia [Unknown]
  - Cognitive disorder [Not Recovered/Not Resolved]
  - Obsessive-compulsive disorder [Unknown]
  - Device alarm issue [Unknown]
  - Device misuse [Unknown]
  - Psychotic disorder [Unknown]
